FAERS Safety Report 9775518 (Version 2)
Quarter: 2014Q1

REPORT INFORMATION
  Report Type: Spontaneous
  Country: US (occurrence: US)
  Receive Date: 20131220
  Receipt Date: 20140318
  Transmission Date: 20141002
  Serious: No
  Sender: FDA-Public Use
  Company Number: US-GALDERMA-US13003585

PATIENT
  Age: 58 Year
  Sex: Female
  Weight: 44 kg

DRUGS (6)
  1. MIRVASO (BRIMONIDINE) TOPICAL GEL, 0.33% [Suspect]
     Indication: ERYTHEMA
     Dosage: 0.33%
     Route: 061
     Dates: start: 20130925, end: 20131101
  2. MARY KAY FORMULA ONE CLEANSING CREAM [Concomitant]
     Indication: THERAPEUTIC SKIN CARE TOPICAL
     Route: 061
  3. MARY KAY MOISTURIZER [Concomitant]
     Indication: DRY SKIN PROPHYLAXIS
     Route: 061
  4. CUREL [Concomitant]
     Indication: DRY SKIN PROPHYLAXIS
     Route: 061
  5. COMBI PATCH [Concomitant]
     Route: 061
  6. MULTIVITAMIN [Concomitant]
     Route: 048

REACTIONS (4)
  - Dry skin [Not Recovered/Not Resolved]
  - Skin tightness [Not Recovered/Not Resolved]
  - Off label use [Recovered/Resolved]
  - Drug ineffective for unapproved indication [Recovered/Resolved]
